FAERS Safety Report 9536196 (Version 4)
Quarter: 2014Q3

REPORT INFORMATION
  Report Type: Report from Study
  Country: US (occurrence: US)
  Receive Date: 20130919
  Receipt Date: 20140702
  Transmission Date: 20150326
  Serious: Yes (Hospitalization, Other)
  Sender: FDA-Public Use
  Company Number: US-ALEXION PHARMACEUTICALS INC.-A201302259

PATIENT

DRUGS (4)
  1. CLONIDINE. [Concomitant]
     Active Substance: CLONIDINE
     Indication: PRODUCT USED FOR UNKNOWN INDICATION
     Dosage: 0.5 MG, QD
     Route: 065
     Dates: start: 20110629
  2. SOLIRIS [Suspect]
     Active Substance: ECULIZUMAB
     Indication: PAROXYSMAL NOCTURNAL HAEMOGLOBINURIA
     Dosage: 900 MG, Q2W
     Route: 042
     Dates: start: 20100805
  3. CYCLOSPORIN [Concomitant]
     Active Substance: CYCLOSPORINE
     Indication: IMMUNOSUPPRESSANT DRUG THERAPY
     Dosage: 150 MG, BID
     Route: 065
     Dates: start: 20110629, end: 20111201
  4. NADOLOL. [Concomitant]
     Active Substance: NADOLOL
     Indication: HYPERTENSION
     Dosage: 60 MG, UNK
     Route: 065
     Dates: start: 20130731

REACTIONS (17)
  - Gallbladder varices [Unknown]
  - Abdominal distension [Unknown]
  - Headache [Not Recovered/Not Resolved]
  - Portal vein thrombosis [Unknown]
  - Flank pain [Not Recovered/Not Resolved]
  - Biopsy liver [Unknown]
  - Oesophageal variceal ligation [Unknown]
  - Chromaturia [Unknown]
  - Jaundice [Unknown]
  - Chills [Not Recovered/Not Resolved]
  - Incision site pain [Not Recovered/Not Resolved]
  - Chest pain [Not Recovered/Not Resolved]
  - Blood bilirubin increased [Unknown]
  - Haemolysis [Unknown]
  - Agitation [Unknown]
  - Somnolence [Unknown]
  - Musculoskeletal pain [Not Recovered/Not Resolved]

NARRATIVE: CASE EVENT DATE: 20140401
